FAERS Safety Report 10871683 (Version 1)
Quarter: 2015Q1

REPORT INFORMATION
  Report Type: Spontaneous
  Country: US (occurrence: US)
  Receive Date: 20150226
  Receipt Date: 20150226
  Transmission Date: 20150721
  Serious: Yes (Other)
  Sender: FDA-Public Use
  Company Number: US-PFIZER INC-2015068160

PATIENT
  Age: 19 Year
  Sex: Male
  Weight: 52 kg

DRUGS (5)
  1. NEURONTIN [Suspect]
     Active Substance: GABAPENTIN
     Dosage: 100 MG, 1X/DAY
  2. MIRTAZAPINE. [Suspect]
     Active Substance: MIRTAZAPINE
     Indication: DEPRESSION
     Dosage: 15 MG, DAILY
     Dates: start: 2010
  3. MIRTAZAPINE. [Suspect]
     Active Substance: MIRTAZAPINE
     Dosage: 7 MG, DAILY
  4. NEURONTIN [Suspect]
     Active Substance: GABAPENTIN
     Indication: MIDDLE INSOMNIA
     Dosage: 200 MG, 1X/DAY (AT BEDTIME)
     Dates: start: 201303
  5. NEURONTIN [Suspect]
     Active Substance: GABAPENTIN
     Indication: INITIAL INSOMNIA
     Dosage: 600 MG, 1X/DAY (AT BEDTIME)
     Dates: start: 2010

REACTIONS (10)
  - Food intolerance [Not Recovered/Not Resolved]
  - Product use issue [Unknown]
  - Coeliac disease [Not Recovered/Not Resolved]
  - Frequent bowel movements [Recovering/Resolving]
  - Cow^s milk intolerance [Not Recovered/Not Resolved]
  - Muscle atrophy [Not Recovered/Not Resolved]
  - Gastritis [Not Recovered/Not Resolved]
  - Weight decreased [Not Recovered/Not Resolved]
  - Abdominal pain [Not Recovered/Not Resolved]
  - Panic attack [Recovered/Resolved]

NARRATIVE: CASE EVENT DATE: 2010
